FAERS Safety Report 13671191 (Version 1)
Quarter: 2017Q2

REPORT INFORMATION
  Report Type: Spontaneous
  Country: US (occurrence: US)
  Receive Date: 20170620
  Receipt Date: 20170620
  Transmission Date: 20170830
  Serious: No
  Sender: FDA-Public Use
  Company Number: US-ROCHE-1354283

PATIENT
  Sex: Male

DRUGS (1)
  1. XELODA [Suspect]
     Active Substance: CAPECITABINE
     Indication: GASTRIC CANCER
     Dosage: 7 DAYS ON/ 7 DAYS OFF
     Route: 048

REACTIONS (4)
  - Anxiety [Unknown]
  - Restlessness [Unknown]
  - Insomnia [Unknown]
  - Off label use [Unknown]
